FAERS Safety Report 9202856 (Version 2)
Quarter: 2013Q2

REPORT INFORMATION
  Report Type: Spontaneous
  Country: BR (occurrence: BR)
  Receive Date: 20130402
  Receipt Date: 20130520
  Transmission Date: 20140414
  Serious: Yes (Other)
  Sender: FDA-Public Use
  Company Number: BR-AMGEN-BRASP2012008732

PATIENT
  Age: 52 Year
  Sex: Female
  Weight: 74 kg

DRUGS (11)
  1. ENBREL [Suspect]
     Indication: RHEUMATOID ARTHRITIS
     Dosage: 50 MG, WEEKLY
     Dates: start: 2012
  2. ENBREL [Suspect]
     Dosage: UNK
  3. ENBREL [Suspect]
     Dosage: 25 MG, 2 TIMES/WK
     Dates: start: 2005, end: 2012
  4. CAPTOPRIL [Concomitant]
     Indication: HYPERTENSION
     Dosage: 50 MG, 3X/DAY
  5. APRESOLINE [Concomitant]
     Indication: HYPERTENSION
     Dosage: 25 MG, 3X/DAY
  6. GLIMEPIRIDE [Concomitant]
     Indication: HYPERTENSION
     Dosage: 5 MG, 1X/DAY
  7. METFORMIN [Concomitant]
     Indication: DIABETES MELLITUS
     Dosage: 850 MG, 2X/DAY
  8. CHLOROQUINE HYDROCHLORIDE [Concomitant]
     Dosage: 400 MG, 1X/DAY
  9. ARTROLIVE [Concomitant]
     Indication: RHEUMATIC DISORDER
     Dosage: 400 MG, 2X/DAY
     Dates: start: 2012
  10. GLIBENCLAMIDE [Concomitant]
     Indication: HYPERTENSION
     Dosage: 5 MG, 1X/DAY
  11. GLYCOMIN                           /00082702/ [Concomitant]
     Indication: HYPERTENSION
     Dosage: 5 MG, 1X/DAY

REACTIONS (4)
  - Gastric ulcer [Recovering/Resolving]
  - Skin disorder [Not Recovered/Not Resolved]
  - Wrong technique in drug usage process [Recovered/Resolved]
  - Injection site pain [Not Recovered/Not Resolved]
